FAERS Safety Report 10403392 (Version 1)
Quarter: 2014Q3

REPORT INFORMATION
  Report Type: Spontaneous
  Country: US (occurrence: None)
  Receive Date: 20140820
  Receipt Date: 20140820
  Transmission Date: 20150326
  Serious: No
  Sender: FDA-Public Use
  Company Number: None

PATIENT
  Age: 69 Year
  Sex: Female
  Weight: 62.6 kg

DRUGS (1)
  1. BYDUREON [Suspect]
     Active Substance: EXENATIDE
     Indication: DIABETES MELLITUS INADEQUATE CONTROL
     Dosage: 7 DAY SHOT  EVERY 7 DAYS

REACTIONS (2)
  - Diabetes mellitus [None]
  - Injection site mass [None]

NARRATIVE: CASE EVENT DATE: 20140621
